FAERS Safety Report 8883659 (Version 1)
Quarter: 2012Q4

REPORT INFORMATION
  Report Type: 
  Country: US (occurrence: US)
  Receive Date: 20121102
  Receipt Date: 20121102
  Transmission Date: 20130627
  Serious: Yes (Other)
  Sender: FDA-Public Use
  Company Number: US-ELI_LILLY_AND_COMPANY-US201210007919

PATIENT
  Sex: Female

DRUGS (5)
  1. HUMALOG LISPRO [Suspect]
     Indication: TYPE 2 DIABETES MELLITUS
     Dosage: UNK, prn
  2. COUMADIN [Concomitant]
  3. LEVEMIR [Concomitant]
     Dosage: 17 u, each evening
  4. PLAVIX [Concomitant]
  5. ASPIRIN                                 /USA/ [Concomitant]

REACTIONS (5)
  - Renal impairment [Not Recovered/Not Resolved]
  - Blood glucose increased [Unknown]
  - Unevaluable event [Unknown]
  - Drug dose omission [Recovered/Resolved]
  - Incorrect storage of drug [Recovered/Resolved]
